FAERS Safety Report 18606027 (Version 5)
Quarter: 2021Q2

REPORT INFORMATION
  Report Type: Spontaneous
  Country: US (occurrence: US)
  Receive Date: 20201211
  Receipt Date: 20210515
  Transmission Date: 20210717
  Serious: Yes (Death, Other)
  Sender: FDA-Public Use
  Company Number: US-TEVA-2020-US-1858332

PATIENT
  Sex: Male

DRUGS (7)
  1. OFEV [Suspect]
     Active Substance: NINTEDANIB
     Route: 065
  2. TREPROSTINIL MDV TEVA [Suspect]
     Active Substance: TREPROSTINIL
     Indication: PULMONARY ARTERIAL HYPERTENSION
  3. TREPROSTINIL MDV TEVA [Suspect]
     Active Substance: TREPROSTINIL
     Indication: SYSTEMIC SCLERODERMA
  4. SILDENAFIL. [Concomitant]
     Active Substance: SILDENAFIL
  5. TREPROSTINIL MDV TEVA [Suspect]
     Active Substance: TREPROSTINIL
     Indication: PULMONARY ARTERIAL HYPERTENSION
     Dosage: 40NG/KG/MIN, FREQUENCY: CONTINUOUS
     Route: 042
     Dates: start: 20180202, end: 20210504
  6. TREPROSTINIL MDV TEVA [Suspect]
     Active Substance: TREPROSTINIL
     Indication: IDIOPATHIC PULMONARY FIBROSIS
  7. TREPROSTINIL MDV TEVA [Suspect]
     Active Substance: TREPROSTINIL
     Indication: PULMONARY FIBROSIS

REACTIONS (9)
  - Death [Fatal]
  - Eructation [Unknown]
  - Blindness [Unknown]
  - Abdominal distension [Unknown]
  - Arthralgia [Unknown]
  - Neuropathy peripheral [Unknown]
  - General physical health deterioration [Unknown]
  - Headache [Not Recovered/Not Resolved]
  - Tooth loss [Unknown]
